FAERS Safety Report 9373849 (Version 1)
Quarter: 2013Q2

REPORT INFORMATION
  Report Type: Report from Study
  Country: ES (occurrence: ES)
  Receive Date: 20130628
  Receipt Date: 20130628
  Transmission Date: 20140414
  Serious: Yes (Hospitalization)
  Sender: FDA-Public Use
  Company Number: ES-ROCHE-1241595

PATIENT
  Age: 58 Year
  Sex: Male
  Weight: 74.1 kg

DRUGS (8)
  1. MYCOPHENOLATE MOFETIL [Suspect]
     Indication: RENAL TRANSPLANT
     Route: 048
     Dates: start: 20110606
  2. TACROLIMUS [Suspect]
     Indication: RENAL TRANSPLANT
     Dosage: 3.0 AND 3.5MG
     Route: 048
     Dates: start: 20110510
  3. PREDNISONE [Suspect]
     Indication: RENAL TRANSPLANT
     Route: 048
     Dates: start: 20110627
  4. ARANESP [Concomitant]
     Indication: ANAEMIA
     Route: 058
     Dates: start: 20110615
  5. SEPTRIN [Concomitant]
     Indication: PROPHYLAXIS
     Route: 048
     Dates: start: 20110517
  6. ADALAT OROS [Concomitant]
     Indication: HYPERTENSION
     Route: 065
     Dates: start: 20110722
  7. CARVEDILOL [Concomitant]
     Indication: HYPERTENSION
     Route: 048
     Dates: start: 20110720
  8. OMEPRAZOLE [Concomitant]
     Indication: PROPHYLAXIS
     Route: 048
     Dates: start: 20110513

REACTIONS (1)
  - Urosepsis [Recovered/Resolved]
